FAERS Safety Report 8008944-9 (Version None)
Quarter: 2011Q4

REPORT INFORMATION
  Report Type: 
  Country: None (occurrence: None)
  Receive Date: 20111221
  Receipt Date: 20111214
  Transmission Date: 20120403
  Serious: Yes (Other)
  Sender: FDA-Public Use
  Company Number: 1000026301

PATIENT
  Age: 76 Year
  Sex: Female
  Weight: 90.72 kg

DRUGS (10)
  1. THEOPHYLLINE (THEOPHYLLINE0 (THEOPHYLLINE) [Concomitant]
  2. DITROPAN (OXYBUTYNIN HYDROCHLORIDE) (OXYBUTYNIN HYDROCHLORIDE) [Concomitant]
  3. POTASSIUM (POTASSIUM) (POTASSIUM) [Concomitant]
  4. PHENOBARBITAL TAB [Concomitant]
  5. SYNTHROID (LEVOTHYROXINE SODIUM) (LEVOTHYROXINE SODIUM) [Concomitant]
  6. DOUBLE STRENGTH GLUCOSAMINE CHONDROITIN MSM WITH MOBILI-FLEX (GLUCOSAM [Suspect]
     Indication: SUPPLEMENTATION THERAPY
     Dosage: 1 (3 IN 1 D), ORAL
     Route: 048
     Dates: start: 20111024, end: 20111114
  7. NEURONTIN [Concomitant]
  8. DALIRESP [Suspect]
     Indication: ASTHMA
     Dosage: 500 MCG (500 MG, 1 IN 1 D), ORAL
     Route: 048
     Dates: start: 20110801
  9. DILANTIN [Concomitant]
  10. LASIX [Concomitant]

REACTIONS (4)
  - CONVULSION [None]
  - FLUID RETENTION [None]
  - ANTICONVULSANT DRUG LEVEL DECREASED [None]
  - OFF LABEL USE [None]
